FAERS Safety Report 11932488 (Version 1)
Quarter: 2016Q1

REPORT INFORMATION
  Report Type: Spontaneous
  Country: US (occurrence: US)
  Receive Date: 20160120
  Receipt Date: 20160120
  Transmission Date: 20160526
  Serious: Yes (Hospitalization, Other)
  Sender: FDA-Public Use
  Company Number: US-DSJP-DSU-2015-133691

PATIENT

DRUGS (2)
  1. BENICAR [Suspect]
     Active Substance: OLMESARTAN MEDOXOMIL
     Indication: PRODUCT USED FOR UNKNOWN INDICATION
     Dosage: UNK
     Dates: start: 2006
  2. BENICAR HCT [Suspect]
     Active Substance: HYDROCHLOROTHIAZIDE\OLMESARTAN MEDOXOMIL
     Indication: HYPERTENSION
     Dosage: 40/ 12.5 MG, QD
     Dates: start: 2005, end: 20090515

REACTIONS (10)
  - Acute kidney injury [Unknown]
  - Diverticulum [Unknown]
  - Hypotension [Unknown]
  - Metabolic acidosis [Unknown]
  - Colon adenoma [Recovered/Resolved]
  - Large intestine polyp [Recovered/Resolved]
  - Gastrointestinal wall thickening [Unknown]
  - Gastrooesophageal reflux disease [Unknown]
  - Multiple organ dysfunction syndrome [Unknown]
  - Malabsorption [Unknown]

NARRATIVE: CASE EVENT DATE: 20071212
